FAERS Safety Report 25998975 (Version 1)
Quarter: 2025Q4

REPORT INFORMATION
  Report Type: Report from Study
  Country: CO (occurrence: CO)
  Receive Date: 20251105
  Receipt Date: 20251105
  Transmission Date: 20260117
  Serious: Yes (Hospitalization)
  Sender: ABBVIE
  Company Number: CO-ABBVIE-6529431

PATIENT
  Age: 41 Year
  Sex: Female
  Weight: 75 kg

DRUGS (1)
  1. RINVOQ [Suspect]
     Active Substance: UPADACITINIB
     Indication: Colitis ulcerative
     Dosage: RINVOQ BOTTLE 15 MG
     Route: 048
     Dates: start: 20241123, end: 20251029

REACTIONS (2)
  - Incoherent [Unknown]
  - Tonsillitis [Recovering/Resolving]

NARRATIVE: CASE EVENT DATE: 20251001
